FAERS Safety Report 8985741 (Version 1)
Quarter: 2012Q4

REPORT INFORMATION
  Report Type: 
  Country: US (occurrence: US)
  Receive Date: 20121226
  Receipt Date: 20121226
  Transmission Date: 20130627
  Serious: Yes (Other)
  Sender: FDA-Public Use
  Company Number: US-AMGEN-USASP2012081039

PATIENT
  Age: 63 Year
  Sex: Male

DRUGS (9)
  1. ENBREL [Suspect]
     Indication: RHEUMATOID ARTHRITIS
     Dosage: 50 mg, qwk
     Dates: start: 2006, end: 201111
  2. ARAVA [Concomitant]
     Dosage: 10 mg, qd
  3. ARAVA [Concomitant]
     Dosage: 20 mg, qd
  4. PREDNISONE [Concomitant]
     Dosage: 7.5 mg, qd
  5. PREDNISONE [Concomitant]
     Dosage: 10 mg, qd alternate with 5 mg
  6. NABUMETONE [Concomitant]
     Dosage: 1000 mg, qd
  7. HYDROXYCHLOROQUINE [Concomitant]
     Dosage: 400 mg, qd
  8. PLAQUENIL                          /00072602/ [Concomitant]
     Dosage: 400 mg, qd
  9. RELAFEN [Concomitant]
     Dosage: 1500 mg, qd

REACTIONS (11)
  - Pulmonary mass [Not Recovered/Not Resolved]
  - Lung infection [Not Recovered/Not Resolved]
  - Pulmonary fibrosis [Unknown]
  - Interstitial lung disease [Unknown]
  - Gout [Unknown]
  - Pain [Unknown]
  - Nodule [Unknown]
  - Swelling [Unknown]
  - Extrasystoles [Unknown]
  - Sleep apnoea syndrome [Unknown]
  - Synovial disorder [Unknown]
